FAERS Safety Report 5738892-6 (Version None)
Quarter: 2008Q2

REPORT INFORMATION
  Report Type: 
  Country: None (occurrence: None)
  Receive Date: 20080515
  Receipt Date: 20080506
  Transmission Date: 20081010
  Serious: Yes (Other)
  Sender: FDA-Public Use
  Company Number: PHNR2007AU02187

PATIENT
  Age: 25 Year
  Sex: Female

DRUGS (1)
  1. CLOZARIL [Suspect]
     Indication: SCHIZOPHRENIA
     Dosage: 12.5 MG - 200 MG DAILY
     Route: 048
     Dates: start: 20060619, end: 20060707

REACTIONS (16)
  - C-REACTIVE PROTEIN INCREASED [None]
  - CARDIOTOXICITY [None]
  - CELL MARKER INCREASED [None]
  - HEART RATE IRREGULAR [None]
  - MONOCYTE COUNT INCREASED [None]
  - PALPITATIONS [None]
  - PAROTID GLAND ENLARGEMENT [None]
  - PRODUCTIVE COUGH [None]
  - PYREXIA [None]
  - RASH MACULAR [None]
  - RED BLOOD CELL SEDIMENTATION RATE INCREASED [None]
  - SINUS TACHYCARDIA [None]
  - TONSILLAR DISORDER [None]
  - VENTRICULAR EXTRASYSTOLES [None]
  - VIRAL INFECTION [None]
  - VOMITING [None]
